FAERS Safety Report 5373550-1 (Version None)
Quarter: 2007Q2

REPORT INFORMATION
  Report Type: 
  Country: None (occurrence: None)
  Receive Date: 20070628
  Receipt Date: 20070625
  Transmission Date: 20071010
  Serious: Yes (Other)
  Sender: FDA-Public Use
  Company Number: B0476070A

PATIENT
  Age: 58 Year
  Sex: Female

DRUGS (5)
  1. VALTREX [Suspect]
     Indication: ORAL HERPES
     Dosage: 500MG TWICE PER DAY
     Route: 048
     Dates: end: 20070516
  2. INTERFERON BETA [Concomitant]
     Indication: DRUG USE FOR UNKNOWN INDICATION
  3. URSO 250 [Concomitant]
     Route: 048
  4. AMLODIN [Concomitant]
     Route: 048
  5. TELMISARTAN [Concomitant]
     Route: 048

REACTIONS (1)
  - PROTEINURIA [None]
